FAERS Safety Report 15778620 (Version 1)
Quarter: 2018Q4

REPORT INFORMATION
  Report Type: Spontaneous
  Country: US (occurrence: US)
  Receive Date: 20181231
  Receipt Date: 20181231
  Transmission Date: 20190205
  Serious: Yes (Hospitalization, Other)
  Sender: FDA-Public Use
  Company Number: US-ASTRAZENECA-2018SF70911

PATIENT
  Age: 77 Year
  Sex: Female

DRUGS (4)
  1. ALBUTEROL. [Concomitant]
     Active Substance: ALBUTEROL
     Route: 055
  2. SYMBICORT [Suspect]
     Active Substance: BUDESONIDE\FORMOTEROL FUMARATE DIHYDRATE
     Indication: CHRONIC OBSTRUCTIVE PULMONARY DISEASE
     Dosage: 2 PUFFS TWICE A DAY
     Route: 055
  3. IPRATROPIUM [Concomitant]
     Active Substance: IPRATROPIUM
     Route: 055
  4. NORVASC [Concomitant]
     Active Substance: AMLODIPINE BESYLATE

REACTIONS (23)
  - Foot fracture [Unknown]
  - Cardiac disorder [Unknown]
  - Asthma [Unknown]
  - Pneumonia [Unknown]
  - Throat irritation [Unknown]
  - Osteoarthritis [Unknown]
  - Drug hypersensitivity [Unknown]
  - Oesophageal disorder [Unknown]
  - Chest discomfort [Unknown]
  - Musculoskeletal discomfort [Unknown]
  - Intentional product misuse [Unknown]
  - Osteoporosis [Unknown]
  - Heart rate irregular [Unknown]
  - Thyroid disorder [Unknown]
  - Gingival pain [Unknown]
  - Hypophagia [Unknown]
  - Feeling hot [Unknown]
  - Dyspepsia [Unknown]
  - Feeling abnormal [Unknown]
  - Wrist fracture [Unknown]
  - Swelling face [Unknown]
  - Oral pain [Unknown]
  - Eye swelling [Unknown]
